FAERS Safety Report 12382514 (Version 1)
Quarter: 2016Q2

REPORT INFORMATION
  Report Type: Report from Study
  Country: US (occurrence: US)
  Receive Date: 20160518
  Receipt Date: 20160518
  Transmission Date: 20160815
  Serious: No
  Sender: FDA-Public Use
  Company Number: US-MALLINCKRODT-T201503043

PATIENT
  Age: 59 Year
  Sex: Female
  Weight: 57 kg

DRUGS (9)
  1. PANTOPRAZOLE [Concomitant]
     Active Substance: PANTOPRAZOLE SODIUM
  2. RITUXAN [Concomitant]
     Active Substance: RITUXIMAB
  3. METHOTREXATE [Concomitant]
     Active Substance: METHOTREXATE
  4. LYRICA [Concomitant]
     Active Substance: PREGABALIN
  5. ALENDRONATE [Concomitant]
     Active Substance: ALENDRONATE SODIUM
  6. NAPROXEN. [Concomitant]
     Active Substance: NAPROXEN
  7. PLAQUENIL [Concomitant]
     Active Substance: HYDROXYCHLOROQUINE SULFATE
  8. FOLIC ACID. [Concomitant]
     Active Substance: FOLIC ACID
  9. REPOSITORY CORTICOTROPIN INJECTION [Suspect]
     Active Substance: CORTICOTROPIN
     Indication: RHEUMATOID ARTHRITIS
     Dosage: 80 UNITS TWICE WEEKLY
     Route: 058
     Dates: start: 20150402, end: 201505

REACTIONS (7)
  - Increased appetite [Recovering/Resolving]
  - Lower limb fracture [Not Recovered/Not Resolved]
  - Hyperhidrosis [Recovered/Resolved]
  - Incorrect drug administration duration [Unknown]
  - Cushingoid [Not Recovered/Not Resolved]
  - Fall [Unknown]
  - Insomnia [Recovered/Resolved]

NARRATIVE: CASE EVENT DATE: 2015
